FAERS Safety Report 20673628 (Version 8)
Quarter: 2023Q1

REPORT INFORMATION
  Report Type: Report from Study
  Country: US (occurrence: US)
  Receive Date: 20220405
  Receipt Date: 20230106
  Transmission Date: 20230417
  Serious: No
  Sender: FDA-Public Use
  Company Number: US-GLAXOSMITHKLINE-US2021AMR241410

PATIENT

DRUGS (1)
  1. BELANTAMAB MAFODOTIN [Suspect]
     Active Substance: BELANTAMAB MAFODOTIN
     Indication: Plasma cell myeloma
     Dosage: UNK UNK, Z (ONCE PER WEEK)
     Route: 042
     Dates: start: 20211102

REACTIONS (7)
  - Keratopathy [Not Recovered/Not Resolved]
  - Visual acuity reduced [Not Recovered/Not Resolved]
  - Dry eye [Not Recovered/Not Resolved]
  - Punctal plug insertion [Unknown]
  - Night blindness [Unknown]
  - Foreign body in eye [Unknown]
  - Off label use [Unknown]

NARRATIVE: CASE EVENT DATE: 20220106
